FAERS Safety Report 23851371 (Version 3)
Quarter: 2024Q4

REPORT INFORMATION
  Report Type: Report from Study
  Country: US (occurrence: US)
  Receive Date: 20240514
  Receipt Date: 20241018
  Transmission Date: 20250115
  Serious: No
  Sender: ROCHE
  Company Number: US-ROCHE-3549148

PATIENT
  Age: 78 Year
  Sex: Male

DRUGS (14)
  1. XOLAIR [Suspect]
     Active Substance: OMALIZUMAB
     Indication: Non-Hodgkin^s lymphoma
     Route: 058
  2. XOLAIR [Suspect]
     Active Substance: OMALIZUMAB
     Indication: Dyspnoea
  3. XOLAIR [Suspect]
     Active Substance: OMALIZUMAB
     Indication: Cough
  4. XOLAIR [Suspect]
     Active Substance: OMALIZUMAB
     Indication: Asthma
  5. COD LIVER OIL [Concomitant]
     Active Substance: COD LIVER OIL
     Dates: start: 20100714
  6. FISH OIL [Concomitant]
     Active Substance: FISH OIL
  7. VALSARTAN [Concomitant]
     Active Substance: VALSARTAN
  8. CYANOCOBALAMIN [Concomitant]
     Active Substance: CYANOCOBALAMIN
  9. VITAMIN D3 [Concomitant]
     Active Substance: CHOLECALCIFEROL
  10. ZINC [Concomitant]
     Active Substance: ZINC
  11. ALBUTEROL [Concomitant]
     Active Substance: ALBUTEROL
  12. FLUTICASONE [Concomitant]
     Active Substance: FLUTICASONE
  13. IPRATROPIUM BROMIDE [Concomitant]
     Active Substance: IPRATROPIUM BROMIDE
  14. MONTELUKAST [Concomitant]
     Active Substance: MONTELUKAST

REACTIONS (2)
  - Loose tooth [Not Recovered/Not Resolved]
  - Hypersensitivity [Unknown]
